FAERS Safety Report 11384608 (Version 1)
Quarter: 2015Q3

REPORT INFORMATION
  Report Type: Spontaneous
  Country: US (occurrence: US)
  Receive Date: 20150811
  Receipt Date: 20150811
  Transmission Date: 20151125
  Serious: No
  Sender: FDA-Public Use
  Company Number: US-ELI_LILLY_AND_COMPANY-US201105005298

PATIENT
  Age: 81 Year
  Sex: Male
  Weight: 108.84 kg

DRUGS (2)
  1. CIALIS [Suspect]
     Active Substance: TADALAFIL
     Indication: ERECTILE DYSFUNCTION
     Dosage: 20 MG, UNKNOWN
     Dates: start: 20110517
  2. CIALIS [Suspect]
     Active Substance: TADALAFIL
     Dosage: 2.5 MG, PRN

REACTIONS (2)
  - Insomnia [Recovered/Resolved]
  - Blood glucose increased [Unknown]

NARRATIVE: CASE EVENT DATE: 20110517
